FAERS Safety Report 18000509 (Version 1)
Quarter: 2020Q3

REPORT INFORMATION
  Report Type: Spontaneous
  Country: CA (occurrence: CA)
  Receive Date: 20200709
  Receipt Date: 20200709
  Transmission Date: 20201103
  Serious: Yes (Other)
  Sender: FDA-Public Use
  Company Number: CA-GLAXOSMITHKLINE-CA2020AMR124064

PATIENT
  Age: 28 Year
  Sex: Male
  Weight: 75 kg

DRUGS (9)
  1. LAMICTAL [Suspect]
     Active Substance: LAMOTRIGINE
     Indication: BIPOLAR DISORDER
     Dosage: 500 MG, QD
     Route: 048
  2. LATUDA [Suspect]
     Active Substance: LURASIDONE HYDROCHLORIDE
     Indication: PSYCHOTIC SYMPTOM
     Dosage: 120 MG, QD
  3. MODAFINIL. [Suspect]
     Active Substance: MODAFINIL
     Indication: AUDITORY DISORDER
  4. MODAFINIL. [Suspect]
     Active Substance: MODAFINIL
     Indication: BIPOLAR DISORDER
  5. APO?LITHIUM CARBONATE [Suspect]
     Active Substance: LITHIUM CARBONATE
     Indication: BIPOLAR DISORDER
     Dosage: 1500 MG, QD
     Route: 048
  6. MODAFINIL. [Suspect]
     Active Substance: MODAFINIL
     Indication: SCHIZOAFFECTIVE DISORDER BIPOLAR TYPE
     Dosage: 200 MG, AS REQUIRED
     Route: 048
  7. PMS?CLONAZEPAM [Suspect]
     Active Substance: CLONAZEPAM
     Indication: ANXIETY
     Dosage: 2 DF, AS REQUIRED
     Route: 048
  8. LATUDA [Suspect]
     Active Substance: LURASIDONE HYDROCHLORIDE
     Indication: DEPRESSION
  9. MODAFINIL. [Suspect]
     Active Substance: MODAFINIL
     Indication: HALLUCINATION

REACTIONS (15)
  - Hallucinations, mixed [Unknown]
  - Anger [Unknown]
  - Decreased appetite [Unknown]
  - Product prescribing error [Unknown]
  - Blood pressure increased [Unknown]
  - Depression [Unknown]
  - Anxiety [Unknown]
  - Off label use [Unknown]
  - Wrong technique in product usage process [Unknown]
  - Drug ineffective [Unknown]
  - Feeling abnormal [Unknown]
  - Insomnia [Unknown]
  - Obsessive-compulsive disorder [Unknown]
  - Agitation [Unknown]
  - Heart rate increased [Unknown]
